FAERS Safety Report 7732377-3 (Version None)
Quarter: 2011Q3

REPORT INFORMATION
  Report Type: 
  Country: None (occurrence: None)
  Receive Date: 20110906
  Receipt Date: 20110825
  Transmission Date: 20111222
  Serious: Yes (Other)
  Sender: FDA-Public Use
  Company Number: US-ASTRAZENECA-2011SE51501

PATIENT
  Age: 28 Year
  Sex: Male

DRUGS (2)
  1. SEROQUEL [Suspect]
     Indication: INSOMNIA
     Dosage: TOTAL DAILY DOSE OF 200 MG
     Route: 048
  2. SEROQUEL [Suspect]
     Indication: MENTAL DISORDER
     Dosage: TOTAL DAILY DOSE OF 200 MG
     Route: 048

REACTIONS (2)
  - NEOPLASM MALIGNANT [None]
  - OFF LABEL USE [None]
